FAERS Safety Report 9853902 (Version 1)
Quarter: 2014Q1

REPORT INFORMATION
  Report Type: Spontaneous
  Country: US (occurrence: US)
  Receive Date: 20140129
  Receipt Date: 20140129
  Transmission Date: 20141002
  Serious: Yes (Other)
  Sender: FDA-Public Use
  Company Number: US-ELI_LILLY_AND_COMPANY-US201401006921

PATIENT
  Sex: Male

DRUGS (2)
  1. HUMALOG LISPRO [Suspect]
     Indication: PRODUCT USED FOR UNKNOWN INDICATION
     Route: 065
  2. LANTUS [Concomitant]

REACTIONS (10)
  - Pancreatitis [Not Recovered/Not Resolved]
  - Blood glucose decreased [Recovered/Resolved]
  - Dry mouth [Unknown]
  - Abasia [Unknown]
  - Dizziness [Unknown]
  - Vision blurred [Unknown]
  - Feeling abnormal [Unknown]
  - Diplopia [Unknown]
  - Feeling jittery [Unknown]
  - Nervousness [Unknown]
